FAERS Safety Report 11663594 (Version 1)
Quarter: 2015Q4

REPORT INFORMATION
  Report Type: Spontaneous
  Country: ES (occurrence: ES)
  Receive Date: 20151027
  Receipt Date: 20151027
  Transmission Date: 20160304
  Serious: Yes (Other)
  Sender: FDA-Public Use
  Company Number: ES-AMGEN-ESPSP2015083237

PATIENT
  Age: 54 Year
  Sex: Female

DRUGS (9)
  1. RENEURON                           /00724402/ [Concomitant]
     Indication: FATIGUE
  2. ENBREL [Suspect]
     Active Substance: ETANERCEPT
     Indication: ANKYLOSING SPONDYLITIS
     Dosage: 50 MG, WEEKLY (ON FRIDAYS)
     Route: 058
     Dates: start: 20150731, end: 2015
  3. RISTFOR [Concomitant]
     Active Substance: METFORMIN HYDROCHLORIDE\SITAGLIPTIN PHOSPHATE
     Indication: TYPE 2 DIABETES MELLITUS
     Dosage: 1 DF (50 MG/1000 MG), 2X/DAY
  4. RENEURON                           /00724402/ [Concomitant]
     Indication: DEPRESSED MOOD
     Dosage: 20 MG, 1X/DAY
  5. SILOSTAR [Concomitant]
     Active Substance: NEBIVOLOL
     Indication: TACHYCARDIA
     Dosage: 5 MG, 1X/DAY
  6. CANDESARTAN CILEXETIL-HYDROCHLOROTHIAZIDE [Concomitant]
     Active Substance: CANDESARTAN CILEXETIL\HYDROCHLOROTHIAZIDE
     Indication: HYPERTENSION
     Dosage: 1 DF (16 MG/12.5 MG), 1X/DAY
  7. ENBREL [Suspect]
     Active Substance: ETANERCEPT
     Dosage: 50 MG, WEEKLY (ON SATURDAYS)
     Route: 058
     Dates: start: 2015
  8. SIMVASTATIN. [Concomitant]
     Active Substance: SIMVASTATIN
     Indication: HYPERCHOLESTEROLAEMIA
     Dosage: 20 MG, 1X/DAY
  9. NEXIUM [Concomitant]
     Active Substance: ESOMEPRAZOLE MAGNESIUM
     Indication: PROPHYLAXIS
     Dosage: 20 MG, 1X/DAY

REACTIONS (18)
  - Choking [Unknown]
  - Erythema [Unknown]
  - Dry skin [Unknown]
  - Therapeutic response unexpected [Unknown]
  - Inflammation [Unknown]
  - Skin exfoliation [Unknown]
  - Rash [Unknown]
  - Pain of skin [Unknown]
  - Hot flush [Unknown]
  - Blood pressure decreased [Unknown]
  - Headache [Unknown]
  - Blood glucose decreased [Unknown]
  - Feeling hot [Unknown]
  - Neck pain [Unknown]
  - Blood glucose increased [Unknown]
  - Skin wrinkling [Unknown]
  - Breast inflammation [Unknown]
  - Swelling [Unknown]

NARRATIVE: CASE EVENT DATE: 2015
